FAERS Safety Report 5449758-3 (Version None)
Quarter: 2007Q3

REPORT INFORMATION
  Report Type: 
  Country: None (occurrence: None)
  Receive Date: 20070910
  Receipt Date: 20070910
  Transmission Date: 20080115
  Serious: Yes (Life-Threatening, Hospitalization)
  Sender: FDA-Public Use
  Company Number: None

PATIENT
  Age: 23 Year
  Sex: Female
  Weight: 90.7194 kg

DRUGS (2)
  1. ULTRAM [Suspect]
     Indication: ARTHRALGIA
     Dosage: 50MG Q4 HOURS PRN PO
     Route: 048
     Dates: start: 20070301, end: 20070731
  2. LEXAPRO [Suspect]
     Dosage: 20MG DAILY PO
     Route: 048
     Dates: start: 20070501, end: 20070819

REACTIONS (17)
  - ABNORMAL BEHAVIOUR [None]
  - AMNESIA [None]
  - APNOEA [None]
  - CARDIAC DISORDER [None]
  - CHEST PAIN [None]
  - CONVERSION DISORDER [None]
  - GRAND MAL CONVULSION [None]
  - HEADACHE [None]
  - HEPATIC ENZYME INCREASED [None]
  - HYPERREFLEXIA [None]
  - HYPERSOMNIA [None]
  - INSOMNIA [None]
  - MANIA [None]
  - MENTAL STATUS CHANGES [None]
  - MUSCLE RIGIDITY [None]
  - MUSCLE TIGHTNESS [None]
  - SEROTONIN SYNDROME [None]
